FAERS Safety Report 4924158-0 (Version None)
Quarter: 2006Q1

REPORT INFORMATION
  Report Type: 
  Country: None (occurrence: None)
  Receive Date: 20060227
  Receipt Date: 20051129
  Transmission Date: 20060701
  Serious: No
  Sender: FDA-Public Use
  Company Number: US-GLAXOSMITHKLINE-A0583827A

PATIENT
  Sex: Female

DRUGS (5)
  1. WELLBUTRIN XL [Suspect]
     Indication: DEPRESSION
     Dosage: 150MG PER DAY
     Route: 048
     Dates: start: 20051108, end: 20051127
  2. PAXIL [Suspect]
     Dosage: 20MG PER DAY
     Route: 048
     Dates: end: 20040101
  3. PAROXETINE HCL [Suspect]
     Dosage: 20MG PER DAY
     Route: 048
     Dates: start: 20040101
  4. DICYCLOMINE [Concomitant]
  5. ORTHO-NOVUM [Concomitant]

REACTIONS (11)
  - ARTHRALGIA [None]
  - CHILLS [None]
  - DYSPHAGIA [None]
  - FATIGUE [None]
  - HEADACHE [None]
  - HYPERHIDROSIS [None]
  - MYALGIA [None]
  - NAUSEA [None]
  - PYREXIA [None]
  - RASH [None]
  - URTICARIA [None]
